FAERS Safety Report 7591490-4 (Version None)
Quarter: 2011Q3

REPORT INFORMATION
  Report Type: 
  Country: None (occurrence: None)
  Receive Date: 20110701
  Receipt Date: 20110701
  Transmission Date: 20111222
  Serious: Yes (Disabling)
  Sender: FDA-Public Use
  Company Number: None

PATIENT
  Age: 7 Year
  Sex: Male
  Weight: 22.2263 kg

DRUGS (1)
  1. SINGULAIR [Suspect]
     Indication: SEASONAL ALLERGY
     Dosage: 5MG DAILY ALMOST DAILY
     Dates: start: 20100401, end: 20110607

REACTIONS (8)
  - INSOMNIA [None]
  - HEADACHE [None]
  - SUICIDAL IDEATION [None]
  - HALLUCINATION [None]
  - ABDOMINAL PAIN UPPER [None]
  - ABNORMAL BEHAVIOUR [None]
  - ARTHRALGIA [None]
  - MYALGIA [None]
